FAERS Safety Report 18423835 (Version 1)
Quarter: 2020Q4

REPORT INFORMATION
  Report Type: Spontaneous
  Country: FR (occurrence: FR)
  Receive Date: 20201024
  Receipt Date: 20201024
  Transmission Date: 20210114
  Serious: Yes (Death, Life-Threatening, Other)
  Sender: FDA-Public Use
  Company Number: FR-AMGEN-FRASP2020169389

PATIENT

DRUGS (3)
  1. FILGRASTIM [Suspect]
     Active Substance: FILGRASTIM
     Indication: NEUTROPENIA
     Dosage: 5 MICROGRAM/KILOGRAM, BID
     Route: 058
  2. MELPHALAN. [Suspect]
     Active Substance: MELPHALAN
     Indication: PRIMARY AMYLOIDOSIS
     Route: 048
  3. FILGRASTIM [Suspect]
     Active Substance: FILGRASTIM
     Indication: HAEMATOPOIETIC STEM CELL MOBILISATION

REACTIONS (7)
  - Acute kidney injury [Fatal]
  - Primary amyloidosis [Unknown]
  - Multiple organ dysfunction syndrome [Fatal]
  - Arrhythmia [Fatal]
  - Blood creatinine increased [Unknown]
  - Death [Fatal]
  - Sepsis [Fatal]
